FAERS Safety Report 9473578 (Version 1)
Quarter: 2013Q3

REPORT INFORMATION
  Report Type: Spontaneous
  Country: US (occurrence: US)
  Receive Date: 20130823
  Receipt Date: 20130823
  Transmission Date: 20140515
  Serious: No
  Sender: FDA-Public Use
  Company Number: US-BRISTOL-MYERS SQUIBB COMPANY-19059716

PATIENT
  Age: 31 Year
  Sex: Female
  Weight: 68.03 kg

DRUGS (2)
  1. SPRYCEL [Suspect]
     Indication: CHRONIC MYELOID LEUKAEMIA
     Dosage: 1DF: 1 SPRYCEL 70 MG TABLET
     Route: 048
  2. WELLBUTRIN [Concomitant]
     Dosage: TABS

REACTIONS (1)
  - Full blood count decreased [Unknown]
